FAERS Safety Report 9828680 (Version 1)
Quarter: 2014Q1

REPORT INFORMATION
  Report Type: Spontaneous
  Country: US (occurrence: US)
  Receive Date: 20140117
  Receipt Date: 20140117
  Transmission Date: 20141002
  Serious: Yes (Hospitalization, Other)
  Sender: FDA-Public Use
  Company Number: US-ELI_LILLY_AND_COMPANY-US201401003128

PATIENT
  Sex: Female

DRUGS (13)
  1. HUMALOG LISPRO [Suspect]
     Indication: PRODUCT USED FOR UNKNOWN INDICATION
     Dosage: 10 U, QD
     Route: 065
  2. HUMALOG LISPRO [Suspect]
     Dosage: 15 U, EACH EVENING
     Route: 065
  3. LANTUS [Concomitant]
     Dosage: 40 MG, BID
  4. PROTONIX [Concomitant]
  5. WARFARIN [Concomitant]
  6. FUROSEMIDE [Concomitant]
  7. LISINOPRIL [Concomitant]
  8. CRESTOR [Concomitant]
  9. LOTREL [Concomitant]
  10. ZYRTEC [Concomitant]
     Indication: SINUS DISORDER
  11. POTASSIUM [Concomitant]
  12. ASPIRIN [Concomitant]
     Dosage: 81 MG, UNK
  13. FOLIC ACID [Concomitant]

REACTIONS (5)
  - Blood glucose increased [Unknown]
  - Cerebrovascular accident [Unknown]
  - Deafness unilateral [Unknown]
  - Underdose [Unknown]
  - Drug dose omission [Unknown]
